FAERS Safety Report 25863381 (Version 1)
Quarter: 2025Q3

REPORT INFORMATION
  Report Type: Report from Study
  Country: EU (occurrence: EU)
  Receive Date: 20250930
  Receipt Date: 20250930
  Transmission Date: 20251021
  Serious: Yes (Other)
  Sender: RANBAXY
  Company Number: EU-SUN PHARMACEUTICAL INDUSTRIES INC-2025RR-529195

PATIENT
  Age: 72 Year
  Sex: Female

DRUGS (1)
  1. SONIDEGIB [Suspect]
     Active Substance: SONIDEGIB
     Indication: Basosquamous carcinoma
     Dosage: 200 MILLIGRAM, DAILY
     Route: 065

REACTIONS (3)
  - Disease progression [Unknown]
  - Muscle spasms [Unknown]
  - Nausea [Unknown]
